FAERS Safety Report 23420586 (Version 1)
Quarter: 2024Q1

REPORT INFORMATION
  Report Type: Spontaneous
  Country: FR (occurrence: FR)
  Receive Date: 20240119
  Receipt Date: 20240119
  Transmission Date: 20240409
  Serious: Yes (Disabling, Other)
  Sender: FDA-Public Use
  Company Number: None

PATIENT
  Age: 63 Year
  Sex: Female
  Weight: 70 kg

DRUGS (1)
  1. OPDIVO [Suspect]
     Active Substance: NIVOLUMAB
     Indication: Malignant melanoma
     Route: 042
     Dates: start: 202011, end: 20210804

REACTIONS (3)
  - Vitiligo [Not Recovered/Not Resolved]
  - Carpal tunnel syndrome [Recovered/Resolved]
  - Rheumatic fever [Recovered/Resolved]

NARRATIVE: CASE EVENT DATE: 20210801
